FAERS Safety Report 6774618-5 (Version None)
Quarter: 2010Q2

REPORT INFORMATION
  Report Type: 
  Country: None (occurrence: None)
  Receive Date: 20100617
  Receipt Date: 20100601
  Transmission Date: 20101027
  Serious: Yes (Hospitalization)
  Sender: FDA-Public Use
  Company Number: US-ROCHE-672790

PATIENT
  Sex: Female
  Weight: 94 kg

DRUGS (7)
  1. BEVACIZUMAB [Suspect]
     Dosage: TOTAL DOSE: 1425 MG, LAST DOSE PRIOR TO SAE: 25 NOVEMBER 2009, FORM: VIALS
     Route: 042
     Dates: start: 20091125, end: 20091216
  2. TRASTUZUMAB [Suspect]
     Dosage: TOTAL DOSE: 760 MG.  LAST DOSE PRIOR TO SAE: 25 NOVEMBER 2009. FORM: VIALS.
     Route: 042
     Dates: start: 20091125, end: 20091216
  3. DOCETAXEL [Suspect]
     Dosage: TOTAL DOSE: 158 MG.  LAST DOSE PRIOR TO SAE: 25 NOVEMBER 2009. FORM: VIALS.
     Route: 042
     Dates: start: 20091125, end: 20091216
  4. CARBOPLATIN [Suspect]
     Dosage: TOTAL DOSE: 656 MG, DOSE LEVEL: 6 AUC.  LAST DOSE PRIOR TO SAE: 25 NOVEMBER 2009. FORM: VIALS.
     Route: 042
     Dates: start: 20091125, end: 20091216
  5. ZOCOR [Concomitant]
     Route: 048
     Dates: start: 20090613
  6. HYDROCHLOROTHIAZIDE [Concomitant]
     Route: 048
     Dates: start: 20090607
  7. TRAMADOL HCL [Concomitant]
     Dosage: TOTAL DOSE REPORTED AS 50-100 MG EVERY HOUR.
     Dates: start: 20070613

REACTIONS (3)
  - INAPPROPRIATE ANTIDIURETIC HORMONE SECRETION [None]
  - MUCOSAL INFLAMMATION [None]
  - NEUTROPENIA [None]
